FAERS Safety Report 7929745-3 (Version None)
Quarter: 2011Q4

REPORT INFORMATION
  Report Type: 
  Country: None (occurrence: None)
  Receive Date: 20111121
  Receipt Date: 20111115
  Transmission Date: 20120403
  Serious: Yes (Other)
  Sender: FDA-Public Use
  Company Number: PHHY2011CA16186

PATIENT
  Sex: Female

DRUGS (9)
  1. FORTEO [Concomitant]
  2. DIDROCAL [Concomitant]
  3. MIACALCIN [Concomitant]
  4. ZOLEDRONOC ACID [Suspect]
     Indication: OSTEOPOROSIS
     Dosage: UNK
     Route: 042
     Dates: start: 20090108
  5. ZOLEDRONOC ACID [Suspect]
     Dosage: UNK
     Route: 042
     Dates: start: 20100126
  6. ZOLEDRONOC ACID [Suspect]
     Dosage: UNK
     Route: 042
     Dates: start: 20110225
  7. VITAMIN D [Concomitant]
  8. CALCIUM [Concomitant]
  9. EVISTA [Concomitant]

REACTIONS (2)
  - RIB FRACTURE [None]
  - PARAESTHESIA [None]
